FAERS Safety Report 6400357-6 (Version None)
Quarter: 2009Q4

REPORT INFORMATION
  Report Type: 
  Country: None (occurrence: None)
  Receive Date: 20091014
  Receipt Date: 20091009
  Transmission Date: 20100525
  Serious: Yes (Other)
  Sender: FDA-Public Use
  Company Number: GB-BAYER-200933748GPV

PATIENT
  Age: 36 Year
  Sex: Female
  Weight: 64 kg

DRUGS (2)
  1. CANESTEN DUO [Suspect]
     Indication: DRUG USE FOR UNKNOWN INDICATION
     Route: 067
     Dates: start: 20090917
  2. CANESTEN DUO [Suspect]
     Route: 067
     Dates: start: 20090917

REACTIONS (4)
  - DISCOMFORT [None]
  - PAIN [None]
  - VAGINAL EXFOLIATION [None]
  - VAGINAL HAEMORRHAGE [None]
